FAERS Safety Report 4967485-3 (Version None)
Quarter: 2006Q2

REPORT INFORMATION
  Report Type: 
  Country: None (occurrence: None)
  Receive Date: 20060410
  Receipt Date: 20060224
  Transmission Date: 20061013
  Serious: Yes (Hospitalization, Other)
  Sender: FDA-Public Use
  Company Number: PHEH2006US02812

PATIENT
  Age: 61 Year
  Sex: Female

DRUGS (3)
  1. DESFERAL [Suspect]
     Indication: BLOOD IRON INCREASED
  2. NEULASTA [Concomitant]
     Route: 058
  3. VIDAZA [Suspect]

REACTIONS (5)
  - FEBRILE NEUTROPENIA [None]
  - HAEMATOCRIT DECREASED [None]
  - HAEMOGLOBIN DECREASED [None]
  - PLATELET COUNT DECREASED [None]
  - WHITE BLOOD CELL COUNT DECREASED [None]
